FAERS Safety Report 8070319-4 (Version None)
Quarter: 2012Q1

REPORT INFORMATION
  Report Type: 
  Country: None (occurrence: None)
  Receive Date: 20120125
  Receipt Date: 20120123
  Transmission Date: 20120608
  Serious: Yes (Hospitalization)
  Sender: FDA-Public Use
  Company Number: IT-PFIZER INC-2012017877

PATIENT
  Age: 88 Year
  Sex: Male

DRUGS (7)
  1. FUROSEMIDE [Concomitant]
     Dosage: 50 MG, UNK
  2. PANTOPRAZOLE SODIUM [Concomitant]
  3. KANRENOL [Concomitant]
  4. ASPIRIN [Concomitant]
  5. NITRODERM [Concomitant]
  6. SINGULAIR [Concomitant]
  7. ZITHROMAX [Suspect]
     Indication: CHRONIC OBSTRUCTIVE PULMONARY DISEASE
     Dosage: 500 MG, 1X/DAY
     Route: 042
     Dates: start: 20111028, end: 20111101

REACTIONS (1)
  - PURPURA [None]
